FAERS Safety Report 19410383 (Version 1)
Quarter: 2021Q2

REPORT INFORMATION
  Report Type: Spontaneous
  Country: US (occurrence: US)
  Receive Date: 20210611
  Receipt Date: 20210611
  Transmission Date: 20210717
  Serious: No
  Sender: FDA-Public Use
  Company Number: None

PATIENT
  Age: 36 Year
  Sex: Female
  Weight: 102.6 kg

DRUGS (1)
  1. BAMLANIVIMAB 700 MG/ETESEVIMAB 1400 MG IN NSS 310 ML INFUSION [Suspect]
     Active Substance: BAMLANIVIMAB\ETESEVIMAB
     Indication: COVID-19
     Dates: start: 20210611, end: 20210611

REACTIONS (5)
  - Unresponsive to stimuli [None]
  - Hypotension [None]
  - Syncope [None]
  - Hyperhidrosis [None]
  - Pallor [None]

NARRATIVE: CASE EVENT DATE: 20210611
